FAERS Safety Report 15472306 (Version 1)
Quarter: 2018Q4

REPORT INFORMATION
  Report Type: Spontaneous
  Country: ME (occurrence: ME)
  Receive Date: 20181008
  Receipt Date: 20181008
  Transmission Date: 20190205
  Serious: Yes (Hospitalization)
  Sender: FDA-Public Use
  Company Number: ME-TEVA-2018-ME-961529

PATIENT
  Age: 66 Year
  Sex: Female
  Weight: 81 kg

DRUGS (5)
  1. SINDAXEL [Suspect]
     Active Substance: PACLITAXEL
     Indication: OVARIAN CANCER METASTATIC
     Dosage: 175 MG/M2
     Route: 042
     Dates: start: 20180824, end: 20180914
  2. TRITACE PLUS 5 MG [Concomitant]
     Indication: HYPERTENSION
     Route: 048
     Dates: end: 20180930
  3. CONTROLOC 20 MG [Concomitant]
     Route: 048
     Dates: end: 20180930
  4. CARBOPLASIN [Suspect]
     Active Substance: CARBOPLATIN
     Indication: OVARIAN CANCER METASTATIC
     Dosage: 350 MG/M2
     Route: 042
     Dates: start: 20180824, end: 20180914
  5. AVASTIN [Suspect]
     Active Substance: BEVACIZUMAB
     Dosage: 15 MG/KG
     Dates: start: 20180824, end: 20180914

REACTIONS (1)
  - Pancreatitis acute [Recovering/Resolving]

NARRATIVE: CASE EVENT DATE: 20181001
